FAERS Safety Report 7163720-4 (Version None)
Quarter: 2010Q4

REPORT INFORMATION
  Report Type: 
  Country: None (occurrence: None)
  Receive Date: 20101215
  Receipt Date: 20100603
  Transmission Date: 20110411
  Serious: Yes (Hospitalization, Other)
  Sender: FDA-Public Use
  Company Number: AU-PFIZER INC-2010069509

PATIENT
  Sex: Female

DRUGS (1)
  1. LYRICA [Suspect]
     Indication: MYALGIA
     Dosage: UNK

REACTIONS (3)
  - DYSPNOEA [None]
  - MYALGIA [None]
  - URINARY BLADDER HAEMORRHAGE [None]
